FAERS Safety Report 8225901-8 (Version None)
Quarter: 2012Q1

REPORT INFORMATION
  Report Type: 
  Country: None (occurrence: None)
  Receive Date: 20120321
  Receipt Date: 20120314
  Transmission Date: 20120608
  Serious: Yes (Other)
  Sender: FDA-Public Use
  Company Number: FR-TEVA-328491USA

PATIENT
  Sex: Male

DRUGS (2)
  1. RITUXIMAB [Suspect]
  2. TREANDA [Suspect]
     Route: 042

REACTIONS (2)
  - LUNG DISORDER [None]
  - HYPOXIA [None]
